FAERS Safety Report 10528782 (Version 6)
Quarter: 2022Q2

REPORT INFORMATION
  Report Type: Report from Study
  Country: BR (occurrence: BR)
  Receive Date: 20141020
  Receipt Date: 20220628
  Transmission Date: 20220721
  Serious: Yes (Hospitalization, Other)
  Sender: FDA-Public Use
  Company Number: BR-SHIRE-BR201402355

PATIENT
  Sex: Female
  Weight: 66 kg

DRUGS (3)
  1. ICATIBANT [Suspect]
     Active Substance: ICATIBANT ACETATE
     Indication: Hereditary angioedema
     Dosage: UNK
     Route: 058
     Dates: start: 2012
  2. ICATIBANT [Suspect]
     Active Substance: ICATIBANT ACETATE
     Indication: Hereditary angioedema
     Dosage: UNK
     Route: 058
     Dates: start: 2012
  3. TRANEXAMIC ACID [Concomitant]
     Active Substance: TRANEXAMIC ACID
     Indication: Prophylaxis
     Dosage: 500 MILLIGRAM, QD
     Route: 048
     Dates: start: 20120215

REACTIONS (3)
  - Angioedema [Recovered/Resolved]
  - Abortion spontaneous [Recovered/Resolved]
  - Pregnancy [Recovered/Resolved]

NARRATIVE: CASE EVENT DATE: 20140101
